FAERS Safety Report 14918319 (Version 2)
Quarter: 2021Q1

REPORT INFORMATION
  Report Type: Report from Study
  Country: US (occurrence: US)
  Receive Date: 20180521
  Receipt Date: 20210317
  Transmission Date: 20210419
  Serious: Yes (Hospitalization, Other)
  Sender: FDA-Public Use
  Company Number: PHEH2018US017939

PATIENT
  Sex: Male

DRUGS (4)
  1. PREDNISONE. [Suspect]
     Active Substance: PREDNISONE
     Dosage: 80 MG, UNKNOWN
     Route: 065
  2. NEORAL [Suspect]
     Active Substance: CYCLOSPORINE
     Dosage: 400 MG, QD
     Route: 065
  3. PREDNISONE. [Suspect]
     Active Substance: PREDNISONE
     Indication: PRODUCT USED FOR UNKNOWN INDICATION
     Dosage: UNK UNK, UNKNOWN
     Route: 065
  4. NEORAL [Suspect]
     Active Substance: CYCLOSPORINE
     Indication: RENAL DISORDER
     Dosage: UNK UNK, UNKNOWN
     Route: 065

REACTIONS (9)
  - Lethargy [Unknown]
  - Disease recurrence [Not Recovered/Not Resolved]
  - Pain [Unknown]
  - Renal disorder [Not Recovered/Not Resolved]
  - Immunodeficiency [Unknown]
  - Headache [Unknown]
  - Iatrogenic injury [Unknown]
  - Nausea [Unknown]
  - Product use in unapproved indication [Unknown]
